FAERS Safety Report 6723929-8 (Version None)
Quarter: 2010Q2

REPORT INFORMATION
  Report Type: 
  Country: None (occurrence: None)
  Receive Date: 20100513
  Receipt Date: 20100504
  Transmission Date: 20101027
  Serious: Yes (Other)
  Sender: FDA-Public Use
  Company Number: US-AMGEN-QUU406474

PATIENT
  Sex: Male
  Weight: 1.4 kg

DRUGS (3)
  1. ENBREL [Suspect]
     Indication: ANKYLOSING SPONDYLITIS
     Route: 064
     Dates: start: 20060901
  2. UNSPECIFIED STEROIDS [Concomitant]
     Route: 064
  3. MAGNESIUM [Concomitant]
     Route: 064

REACTIONS (3)
  - HERNIA [None]
  - HYPOSPADIAS [None]
  - PREMATURE BABY [None]
